FAERS Safety Report 21174735 (Version 4)
Quarter: 2022Q4

REPORT INFORMATION
  Report Type: Spontaneous
  Country: CA (occurrence: CA)
  Receive Date: 20220805
  Receipt Date: 20221201
  Transmission Date: 20230112
  Serious: Yes (Other)
  Sender: FDA-Public Use
  Company Number: CA-CELLTRION INC.-2022CA012265

PATIENT

DRUGS (3)
  1. INFLECTRA [Suspect]
     Active Substance: INFLIXIMAB-DYYB
     Indication: Ankylosing spondylitis
     Dosage: 400 MG (5 MG/KG)EVERY 6 WEEKS
     Route: 042
     Dates: start: 20201009
  2. INFLECTRA [Suspect]
     Active Substance: INFLIXIMAB-DYYB
     Dosage: 400 MG (5 MG/KG)EVERY 6 WEEKS
     Route: 042
     Dates: start: 20220721
  3. INFLECTRA [Suspect]
     Active Substance: INFLIXIMAB-DYYB
     Dosage: 400 MG (5 MG/KG)EVERY 6 WEEKS
     Route: 042
     Dates: start: 20221013

REACTIONS (8)
  - Bradycardia [Unknown]
  - Off label use [Unknown]
  - Product use issue [Unknown]
  - Therapeutic response shortened [Unknown]
  - Inappropriate schedule of product administration [Unknown]
  - Product dose omission issue [Unknown]
  - Blood pressure increased [Unknown]
  - Pain [Recovering/Resolving]

NARRATIVE: CASE EVENT DATE: 20220721
